FAERS Safety Report 7931806-X (Version None)
Quarter: 2011Q4

REPORT INFORMATION
  Report Type: 
  Country: None (occurrence: None)
  Receive Date: 20111121
  Receipt Date: 20111115
  Transmission Date: 20120403
  Serious: Yes (Hospitalization)
  Sender: FDA-Public Use
  Company Number: JP-JNJFOC-20111003538

PATIENT
  Age: 74 Year
  Sex: Female

DRUGS (4)
  1. PREDNISOLONE [Suspect]
     Indication: RHEUMATOID ARTHRITIS
     Route: 065
  2. METHOTREXATE [Suspect]
     Indication: RHEUMATOID ARTHRITIS
     Route: 065
  3. SULFASALAZINE [Suspect]
     Indication: RHEUMATOID ARTHRITIS
     Route: 065
  4. REMICADE [Suspect]
     Indication: RHEUMATOID ARTHRITIS
     Dosage: TWO DOSES IN TOTAL
     Route: 042

REACTIONS (3)
  - TENOSYNOVITIS [None]
  - GRANULOMA [None]
  - MYCOBACTERIUM AVIUM COMPLEX INFECTION [None]
